FAERS Safety Report 7913844-6 (Version None)
Quarter: 2011Q4

REPORT INFORMATION
  Report Type: 
  Country: None (occurrence: None)
  Receive Date: 20111115
  Receipt Date: 20111110
  Transmission Date: 20120403
  Serious: Yes (Hospitalization)
  Sender: FDA-Public Use
  Company Number: IE-AMGEN-IRLSP2011059218

PATIENT

DRUGS (4)
  1. LEUCOVORIN CALCIUM [Concomitant]
  2. NEULASTA [Suspect]
     Indication: CHEMOTHERAPY
  3. FLUOROURACIL [Concomitant]
  4. OXALIPLATIN [Concomitant]

REACTIONS (1)
  - PNEUMONIA [None]
